FAERS Safety Report 7406530-2 (Version None)
Quarter: 2011Q2

REPORT INFORMATION
  Report Type: 
  Country: None (occurrence: None)
  Receive Date: 20110411
  Receipt Date: 20110401
  Transmission Date: 20111010
  Serious: Yes (Other)
  Sender: FDA-Public Use
  Company Number: US-ASTRAZENECA-2011SE18658

PATIENT
  Sex: Female
  Weight: 73.9 kg

DRUGS (2)
  1. SEROQUEL XR [Suspect]
     Indication: INSOMNIA
     Route: 048
  2. GABAPENTIN [Concomitant]
     Indication: HALLUCINATION, AUDITORY

REACTIONS (2)
  - OFF LABEL USE [None]
  - ENDOMETRIOSIS [None]
